FAERS Safety Report 12239586 (Version 3)
Quarter: 2016Q2

REPORT INFORMATION
  Report Type: Spontaneous
  Country: US (occurrence: US)
  Receive Date: 20160405
  Receipt Date: 20160511
  Transmission Date: 20160815
  Serious: No
  Sender: FDA-Public Use
  Company Number: US-GLAXOSMITHKLINE-US2016GSK041864

PATIENT
  Sex: Female

DRUGS (6)
  1. VERAMYST [Concomitant]
     Active Substance: FLUTICASONE FUROATE
  2. ANORO ELLIPTA [Suspect]
     Active Substance: UMECLIDINIUM BROMIDE\VILANTEROL TRIFENATATE
     Indication: PRODUCT USED FOR UNKNOWN INDICATION
     Dosage: UNK, U
     Route: 055
  3. BREO ELLIPTA [Suspect]
     Active Substance: FLUTICASONE FUROATE\VILANTEROL TRIFENATATE
     Indication: MULTIPLE ALLERGIES
  4. BREO ELLIPTA [Suspect]
     Active Substance: FLUTICASONE FUROATE\VILANTEROL TRIFENATATE
     Indication: CHRONIC OBSTRUCTIVE PULMONARY DISEASE
     Dosage: 100/25 UG
     Route: 055
     Dates: start: 20150207, end: 201603
  5. SINGULAIR [Concomitant]
     Active Substance: MONTELUKAST SODIUM
  6. ALBUTEROL. [Concomitant]
     Active Substance: ALBUTEROL

REACTIONS (8)
  - Tooth disorder [Unknown]
  - Oral candidiasis [Recovered/Resolved]
  - Off label use [Unknown]
  - Dry mouth [Recovered/Resolved]
  - Malaise [Unknown]
  - Tooth loss [Unknown]
  - Chest discomfort [Recovered/Resolved]
  - Oxygen consumption [Unknown]
